FAERS Safety Report 20789497 (Version 1)
Quarter: 2022Q2

REPORT INFORMATION
  Report Type: Spontaneous
  Country: US (occurrence: None)
  Receive Date: 20220504
  Receipt Date: 20220504
  Transmission Date: 20220720
  Serious: Yes (Hospitalization, Disabling)
  Sender: FDA-Public Use
  Company Number: None

PATIENT
  Age: 47 Year
  Sex: Female
  Weight: 67.5 kg

DRUGS (5)
  1. SUBOXONE [Suspect]
     Active Substance: BUPRENORPHINE HYDROCHLORIDE\NALOXONE HYDROCHLORIDE
     Indication: Pain management
     Dosage: OTHER QUANTITY : 4 SUBLINGUAL FILM;?FREQUENCY : EVERY 6 HOURS;?
     Route: 060
     Dates: start: 20120327, end: 20201130
  2. VALIUM [Concomitant]
  3. quietapine [Concomitant]
  4. SERTRALINE [Concomitant]
  5. BUSPIRONE [Concomitant]
     Active Substance: BUSPIRONE HYDROCHLORIDE

REACTIONS (1)
  - Tooth fracture [None]

NARRATIVE: CASE EVENT DATE: 20120427
